FAERS Safety Report 11745182 (Version 1)
Quarter: 2015Q4

REPORT INFORMATION
  Report Type: Spontaneous
  Country: US (occurrence: US)
  Receive Date: 20151117
  Receipt Date: 20151117
  Transmission Date: 20160304
  Serious: Yes (Other)
  Sender: FDA-Public Use
  Company Number: US-BEH-2015055706

PATIENT
  Sex: Female
  Weight: 45 kg

DRUGS (22)
  1. SINGULAIR [Concomitant]
     Active Substance: MONTELUKAST SODIUM
  2. XOLAIR [Concomitant]
     Active Substance: OMALIZUMAB
  3. VESICARE [Concomitant]
     Active Substance: SOLIFENACIN SUCCINATE
  4. GENTAMYCIN [Concomitant]
     Active Substance: GENTAMICIN
  5. VITAMIN B12 [Concomitant]
     Active Substance: CYANOCOBALAMIN
  6. VITAMIN E [Concomitant]
     Active Substance: .ALPHA.-TOCOPHEROL
  7. SIMVASTATIN. [Concomitant]
     Active Substance: SIMVASTATIN
  8. REVATIO [Concomitant]
     Active Substance: SILDENAFIL CITRATE
  9. DEXAMETHASONE. [Concomitant]
     Active Substance: DEXAMETHASONE
  10. EPIPEN [Concomitant]
     Active Substance: EPINEPHRINE
  11. MULTIVITAMINS [Concomitant]
     Active Substance: VITAMINS
  12. ESTRADIOL. [Concomitant]
     Active Substance: ESTRADIOL
  13. COENZYME Q [Concomitant]
  14. PAXIL [Concomitant]
     Active Substance: PAROXETINE HYDROCHLORIDE
  15. HIZENTRA [Suspect]
     Active Substance: HUMAN IMMUNOGLOBULIN G
     Dosage: 4 GM 20 ML VIALS
     Route: 058
  16. LMX [Concomitant]
     Active Substance: LIDOCAINE
  17. VITAMIN C [Concomitant]
     Active Substance: ASCORBIC ACID
  18. VITAMIN D [Concomitant]
     Active Substance: CHOLECALCIFEROL
  19. CALCIUM [Concomitant]
     Active Substance: CALCIUM
  20. HIZENTRA [Suspect]
     Active Substance: HUMAN IMMUNOGLOBULIN G
     Indication: IMMUNODEFICIENCY COMMON VARIABLE
     Dosage: 2 GM 10 ML VIAL
     Route: 058
  21. DIPHENHYDRAMINE. [Concomitant]
     Active Substance: DIPHENHYDRAMINE
  22. LIDOCAINE/ PRILOCAINE [Concomitant]

REACTIONS (3)
  - Peripheral swelling [Unknown]
  - Wound [Unknown]
  - Staphylococcal infection [Unknown]
